FAERS Safety Report 9512069 (Version 2)
Quarter: 2013Q4

REPORT INFORMATION
  Report Type: Spontaneous
  Country: SE (occurrence: SE)
  Receive Date: 20130910
  Receipt Date: 20131223
  Transmission Date: 20140711
  Serious: Yes (Other)
  Sender: FDA-Public Use
  Company Number: SE-PFIZER INC-2013257918

PATIENT
  Age: 43 Year
  Sex: Male

DRUGS (1)
  1. DOSTINEX [Suspect]
     Dosage: UNK

REACTIONS (1)
  - Heart valve incompetence [Unknown]
